FAERS Safety Report 13386297 (Version 2)
Quarter: 2017Q2

REPORT INFORMATION
  Report Type: Spontaneous
  Country: ES (occurrence: ES)
  Receive Date: 20170330
  Receipt Date: 20170407
  Transmission Date: 20170830
  Serious: Yes (Hospitalization)
  Sender: FDA-Public Use
  Company Number: ES-ASTRAZENECA-2017SE29006

PATIENT
  Age: 29028 Day
  Sex: Female
  Weight: 72 kg

DRUGS (11)
  1. BISOPROLOL [Concomitant]
     Active Substance: BISOPROLOL
  2. ASA [Concomitant]
     Active Substance: ASPIRIN
  3. NITRODERM [Concomitant]
     Active Substance: NITROGLYCERIN
  4. ASA [Concomitant]
     Active Substance: ASPIRIN
  5. NOCTAMID [Concomitant]
     Active Substance: LORMETAZEPAM
  6. LYNPARZA [Suspect]
     Active Substance: OLAPARIB
     Indication: OVARIAN CANCER
     Route: 048
     Dates: start: 20160824, end: 20170207
  7. SERETIDE [Concomitant]
     Active Substance: FLUTICASONE PROPIONATE\SALMETEROL XINAFOATE
     Dosage: 25/125MCG, 2 DOSAGE FORMS TWO TIMES A DAY
  8. LYNPARZA [Suspect]
     Active Substance: OLAPARIB
     Indication: MALIGNANT PERITONEAL NEOPLASM
     Route: 048
     Dates: start: 20160824, end: 20170207
  9. LYNPARZA [Suspect]
     Active Substance: OLAPARIB
     Indication: BRCA1 GENE MUTATION
     Route: 048
     Dates: start: 20160824, end: 20170207
  10. ENALAPRIL [Concomitant]
     Active Substance: ENALAPRIL
  11. PARACETAMOL [Concomitant]
     Active Substance: ACETAMINOPHEN

REACTIONS (1)
  - Pneumonitis [Recovered/Resolved]

NARRATIVE: CASE EVENT DATE: 20170101
